FAERS Safety Report 23791540 (Version 1)
Quarter: 2024Q2

REPORT INFORMATION
  Report Type: Spontaneous
  Country: US (occurrence: US)
  Receive Date: 20240429
  Receipt Date: 20240429
  Transmission Date: 20240715
  Serious: No
  Sender: FDA-Public Use
  Company Number: US-ELI_LILLY_AND_COMPANY-US202404016889

PATIENT

DRUGS (2)
  1. TALTZ [Suspect]
     Active Substance: IXEKIZUMAB
     Indication: Psoriatic arthropathy
     Dosage: UNK UNK, MONTHLY (1/M)
     Route: 058
  2. TALTZ [Suspect]
     Active Substance: IXEKIZUMAB
     Indication: Psoriasis

REACTIONS (1)
  - Psoriatic arthropathy [Not Recovered/Not Resolved]
